FAERS Safety Report 15592971 (Version 1)
Quarter: 2018Q4

REPORT INFORMATION
  Report Type: Spontaneous
  Country: IT (occurrence: IT)
  Receive Date: 20181107
  Receipt Date: 20181107
  Transmission Date: 20190205
  Serious: Yes (Death, Other)
  Sender: FDA-Public Use
  Company Number: IT-MYLANLABS-2018M1082073

PATIENT
  Age: 57 Year
  Sex: Female

DRUGS (2)
  1. MORPHINE [Suspect]
     Active Substance: MORPHINE
     Indication: ANALGESIC THERAPY
     Route: 065
  2. OXAZEPAM. [Suspect]
     Active Substance: OXAZEPAM
     Indication: ANALGESIC THERAPY
     Route: 065

REACTIONS (4)
  - Cor pulmonale chronic [Fatal]
  - Pulmonary granuloma [Fatal]
  - Right ventricular failure [Fatal]
  - Pulmonary hypertension [Fatal]
